FAERS Safety Report 5311557-0 (Version None)
Quarter: 2007Q2

REPORT INFORMATION
  Report Type: 
  Country: None (occurrence: None)
  Receive Date: 20070430
  Receipt Date: 20070420
  Transmission Date: 20071010
  Serious: Yes (Life-Threatening)
  Sender: FDA-Public Use
  Company Number: 2007JP001733

PATIENT
  Age: 50 Year
  Sex: Female

DRUGS (4)
  1. CEFAMEZIN [Suspect]
     Route: 042
     Dates: start: 20070326, end: 20070326
  2. PENTAZOCINE LACTATE [Suspect]
     Dates: start: 20070326, end: 20070326
  3. VECURONIUM BROMIDE [Suspect]
     Dates: start: 20070326, end: 20070326
  4. PROPOFOL [Suspect]
     Dates: start: 20070326, end: 20070326

REACTIONS (2)
  - LARYNGEAL OEDEMA [None]
  - RESPIRATORY ARREST [None]
